FAERS Safety Report 19309686 (Version 5)
Quarter: 2023Q1

REPORT INFORMATION
  Report Type: Report from Study
  Country: US (occurrence: US)
  Receive Date: 20210526
  Receipt Date: 20230210
  Transmission Date: 20230418
  Serious: Yes (Hospitalization, Other)
  Sender: FDA-Public Use
  Company Number: US-TAKEDA-2021TUS033182

PATIENT
  Age: 5 Year
  Sex: Male

DRUGS (12)
  1. TEDUGLUTIDE [Suspect]
     Active Substance: TEDUGLUTIDE
     Indication: Short-bowel syndrome
     Dosage: 0.6 MILLIGRAM, QD
     Route: 042
     Dates: start: 20210216
  2. TEDUGLUTIDE [Suspect]
     Active Substance: TEDUGLUTIDE
     Indication: Short-bowel syndrome
     Dosage: 0.6 MILLIGRAM, QD
     Route: 042
     Dates: start: 20210216
  3. TEDUGLUTIDE [Suspect]
     Active Substance: TEDUGLUTIDE
     Indication: Short-bowel syndrome
     Dosage: 0.6 MILLIGRAM, QD
     Route: 042
     Dates: start: 20210216
  4. TEDUGLUTIDE [Suspect]
     Active Substance: TEDUGLUTIDE
     Indication: Short-bowel syndrome
     Dosage: 0.6 MILLIGRAM, QD
     Route: 042
     Dates: start: 20210216
  5. ERYTHROMYCIN [Concomitant]
     Active Substance: ERYTHROMYCIN
     Dosage: 40 MILLIGRAM
     Route: 050
     Dates: start: 20210420
  6. LEVETIRACETAM [Concomitant]
     Active Substance: LEVETIRACETAM
     Dosage: UNK
     Route: 050
     Dates: start: 20210420
  7. ALCOHOL [Concomitant]
     Active Substance: ALCOHOL
     Dosage: 0.20 MILLILITER
     Route: 042
     Dates: start: 20210420
  8. ZINC OXIDE [Concomitant]
     Active Substance: ZINC OXIDE
     Dosage: UNK
     Route: 061
     Dates: start: 20210420
  9. VANCOMYCIN [Concomitant]
     Active Substance: VANCOMYCIN
     Indication: Bacteraemia
     Dosage: 17.50 MILLIGRAM/KILOGRAM, QID
     Route: 042
     Dates: start: 20220105, end: 20220108
  10. VANCOMYCIN [Concomitant]
     Active Substance: VANCOMYCIN
     Indication: Device related sepsis
     Dosage: 17.50 MILLIGRAM/KILOGRAM, QID
     Route: 042
     Dates: start: 20220201, end: 20220220
  11. MICAFUNGIN [Concomitant]
     Active Substance: MICAFUNGIN
     Indication: Device related sepsis
     Dosage: 4.00 MILLIGRAM/KILOGRAM, TID
     Route: 042
     Dates: start: 20220105, end: 20220123
  12. CEFAZOLIN [Concomitant]
     Active Substance: CEFAZOLIN
     Indication: Staphylococcal infection
     Dosage: 450 MILLIGRAM, TID
     Route: 042
     Dates: start: 20211221, end: 20211221

REACTIONS (1)
  - Device related sepsis [Recovered/Resolved]

NARRATIVE: CASE EVENT DATE: 20210511
